FAERS Safety Report 5404909-1 (Version None)
Quarter: 2007Q3

REPORT INFORMATION
  Report Type: 
  Country: None (occurrence: None)
  Receive Date: 20070803
  Receipt Date: 20070801
  Transmission Date: 20080115
  Serious: Yes (Death, Hospitalization, Disabling)
  Sender: FDA-Public Use
  Company Number: US-BAYER-200616607BWH

PATIENT
  Age: 70 Year
  Sex: Male

DRUGS (6)
  1. NEXAVAR [Suspect]
     Indication: RENAL CELL CARCINOMA STAGE UNSPECIFIED
     Dosage: TOTAL DAILY DOSE: 800 MG  UNIT DOSE: 200 MG
     Route: 048
     Dates: start: 20051201, end: 20060101
  2. NEXAVAR [Suspect]
     Dosage: UNIT DOSE: 200 MG
     Route: 048
     Dates: start: 20060101, end: 20060701
  3. LISINOPRIL [Concomitant]
  4. FLOMAX [Concomitant]
  5. OXYGEN [Concomitant]
  6. OTHER UNKNOWN MEDICATIONS [Concomitant]

REACTIONS (6)
  - ABASIA [None]
  - ANOREXIA [None]
  - ATRIAL FIBRILLATION [None]
  - BLISTER [None]
  - MALIGNANT PLEURAL EFFUSION [None]
  - RASH [None]
